FAERS Safety Report 13406978 (Version 1)
Quarter: 2017Q2

REPORT INFORMATION
  Report Type: Spontaneous
  Country: GB (occurrence: GB)
  Receive Date: 20170405
  Receipt Date: 20170405
  Transmission Date: 20170830
  Serious: Yes (Other)
  Sender: FDA-Public Use
  Company Number: GB-TEVA-754355ACC

PATIENT
  Age: 55 Year
  Sex: Male
  Weight: 106 kg

DRUGS (8)
  1. CINNARIZINE [Concomitant]
     Active Substance: CINNARIZINE
     Dosage: USE AS DISCUSSED (ONE OR EVEN TWO UP TO 3 TIMES...
     Dates: start: 20160606
  2. CO-DYDRAMOL [Concomitant]
     Active Substance: ACETAMINOPHEN\DIHYDROCODEINE
     Indication: ANALGESIC THERAPY
     Dosage: TAKE 1 OR 2 UP 4 TIMES A DAY.
     Dates: start: 20170201, end: 20170301
  3. SYMBICORT [Concomitant]
     Active Substance: BUDESONIDE\FORMOTEROL FUMARATE DIHYDRATE
     Dosage: TWICE A DAY, REDUCE DOS...
     Route: 055
     Dates: start: 20161130
  4. VENTOLIN [Concomitant]
     Active Substance: ALBUTEROL SULFATE
     Route: 055
     Dates: start: 20160606
  5. TOPIRAMATE. [Concomitant]
     Active Substance: TOPIRAMATE
     Dosage: 2 DOSAGE FORMS DAILY;
     Dates: start: 20160606
  6. DULOXETINE. [Concomitant]
     Active Substance: DULOXETINE
     Dosage: 1 DOSAGE FORMS DAILY;
     Dates: start: 20160606
  7. ACETAZOLAMIDE. [Suspect]
     Active Substance: ACETAZOLAMIDE
     Dates: start: 20160825
  8. LANSOPRAZOLE. [Concomitant]
     Active Substance: LANSOPRAZOLE
     Dosage: 1 DOSAGE FORMS DAILY;
     Dates: start: 20170201, end: 20170301

REACTIONS (1)
  - Hepatitis [Recovering/Resolving]

NARRATIVE: CASE EVENT DATE: 20170314
